FAERS Safety Report 5719810-3 (Version None)
Quarter: 2008Q2

REPORT INFORMATION
  Report Type: 
  Country: None (occurrence: None)
  Receive Date: 20080428
  Receipt Date: 20080422
  Transmission Date: 20081010
  Serious: Yes (Death)
  Sender: FDA-Public Use
  Company Number: FR-ASTRAZENECA-2008CG00627

PATIENT
  Age: 15252 Day
  Sex: Male
  Weight: 85 kg

DRUGS (4)
  1. NEXIUM [Suspect]
     Route: 048
  2. TEGRETOL [Suspect]
     Indication: EPILEPSY
  3. CARBAMAZEPINE [Suspect]
  4. URBANYL [Suspect]
     Route: 048

REACTIONS (4)
  - CARDIAC ARREST [None]
  - CONVULSIONS LOCAL [None]
  - DRUG INEFFECTIVE [None]
  - GRAND MAL CONVULSION [None]
